FAERS Safety Report 7683317-7 (Version None)
Quarter: 2011Q3

REPORT INFORMATION
  Report Type: 
  Country: None (occurrence: None)
  Receive Date: 20110815
  Receipt Date: 20110808
  Transmission Date: 20111222
  Serious: Yes (Hospitalization)
  Sender: FDA-Public Use
  Company Number: JP-GLAXOSMITHKLINE-B0739162A

PATIENT
  Sex: Male
  Weight: 62 kg

DRUGS (11)
  1. VICCLOX [Concomitant]
     Dosage: 1000MG PER DAY
     Route: 048
     Dates: start: 20090220, end: 20090224
  2. MUCOSTA [Concomitant]
     Dosage: 300MG PER DAY
     Route: 048
     Dates: end: 20090305
  3. ASPIRIN [Concomitant]
     Dosage: 100MG PER DAY
     Route: 048
  4. ALOSITOL [Concomitant]
     Dosage: 300MG PER DAY
     Route: 048
     Dates: start: 20090205, end: 20090316
  5. ALKERAN [Suspect]
     Indication: STEM CELL TRANSPLANT
     Dosage: 100MGM2 PER DAY
     Route: 042
     Dates: start: 20090223, end: 20090224
  6. JUVELA N [Concomitant]
     Dosage: 300MG PER DAY
     Route: 048
     Dates: end: 20090309
  7. LANSOPRAZOLE [Concomitant]
     Dosage: 30MG PER DAY
     Route: 048
  8. DIFLUCAN [Concomitant]
     Dosage: 200MG PER DAY
     Route: 048
     Dates: start: 20090219, end: 20090224
  9. VICCLOX [Concomitant]
     Dosage: 750MG PER DAY
     Route: 042
     Dates: start: 20090224, end: 20090310
  10. FUROSEMIDE [Concomitant]
     Dosage: 40MG PER DAY
     Route: 048
     Dates: start: 20090208, end: 20090430
  11. LEVOFLOXACIN [Concomitant]
     Dosage: 300MG PER DAY
     Route: 048
     Dates: start: 20090219, end: 20090306

REACTIONS (1)
  - SEPSIS [None]
